FAERS Safety Report 4923152-3 (Version None)
Quarter: 2006Q1

REPORT INFORMATION
  Report Type: 
  Country: None (occurrence: None)
  Receive Date: 20060113
  Receipt Date: 20050110
  Transmission Date: 20060701
  Serious: Yes (Other)
  Sender: FDA-Public Use
  Company Number: HQWYE200916JUL04

PATIENT
  Age: 44 Year
  Sex: Female
  Weight: 59.93 kg

DRUGS (6)
  1. PREMPRO [Suspect]
     Indication: HORMONE REPLACEMENT THERAPY
     Dates: start: 20000426
  2. ACTIVELLA [Suspect]
     Indication: HAEMORRHAGE
     Dates: start: 20010827
  3. CENESTIN [Suspect]
     Indication: MENOPAUSE
  4. FEMHRT [Suspect]
     Indication: MENOPAUSAL SYMPTOMS
     Dates: start: 20000829, end: 20010301
  5. VAGIFEM [Suspect]
     Indication: VULVOVAGINAL DRYNESS
     Dates: start: 20020819
  6. SYNTHROID [Concomitant]

REACTIONS (5)
  - DEEP VEIN THROMBOSIS [None]
  - DYSMENORRHOEA [None]
  - MENOMETRORRHAGIA [None]
  - PULMONARY EMBOLISM [None]
  - UTERINE LEIOMYOMA [None]
